FAERS Safety Report 15752993 (Version 3)
Quarter: 2020Q3

REPORT INFORMATION
  Report Type: Spontaneous
  Country: BE (occurrence: BE)
  Receive Date: 20181221
  Receipt Date: 20200709
  Transmission Date: 20201102
  Serious: Yes (Other)
  Sender: FDA-Public Use
  Company Number: BE-BIOGEN-2018BI00529598

PATIENT
  Age: 40 Year
  Sex: Male

DRUGS (3)
  1. TECFIDERA [Suspect]
     Active Substance: DIMETHYL FUMARATE
     Indication: PRODUCT USED FOR UNKNOWN INDICATION
     Route: 065
  2. GILENYA [Suspect]
     Active Substance: FINGOLIMOD HYDROCHLORIDE
     Indication: MULTIPLE SCLEROSIS
     Route: 048
     Dates: start: 20140828, end: 20160105
  3. RILATINE [Suspect]
     Active Substance: METHYLPHENIDATE HYDROCHLORIDE
     Indication: FATIGUE
     Route: 065
     Dates: start: 20150122, end: 20151022

REACTIONS (19)
  - Tension headache [Recovered/Resolved]
  - Tic [Recovered/Resolved]
  - Fatigue [Recovered/Resolved]
  - Lymphocyte percentage decreased [Unknown]
  - Prostatitis [Unknown]
  - Flushing [Unknown]
  - Abdominal discomfort [Recovered/Resolved]
  - Feeling abnormal [Recovered/Resolved]
  - Ligament sprain [Unknown]
  - Psychomotor hyperactivity [Recovered/Resolved]
  - Concussion [Unknown]
  - Gamma-glutamyltransferase increased [Unknown]
  - Syncope [Unknown]
  - Fall [Unknown]
  - Lymphocyte count decreased [Recovered/Resolved]
  - Migraine [Recovered/Resolved]
  - Joint hyperextension [Recovered/Resolved]
  - Tendonitis [Recovered/Resolved]
  - Headache [Recovered/Resolved]

NARRATIVE: CASE EVENT DATE: 20140925
